FAERS Safety Report 15586363 (Version 1)
Quarter: 2018Q4

REPORT INFORMATION
  Report Type: Spontaneous
  Country: US (occurrence: US)
  Receive Date: 20181105
  Receipt Date: 20181105
  Transmission Date: 20190205
  Serious: Yes (Other)
  Sender: FDA-Public Use
  Company Number: US-WARNER CHILCOTT-2015-000984

PATIENT
  Sex: Female

DRUGS (2)
  1. LO LOESTRIN FE [Suspect]
     Active Substance: ETHINYL ESTRADIOL\NORETHINDRONE ACETATE
     Indication: CONTRACEPTION
     Dosage: UNK
     Route: 048
  2. LO LOESTRIN FE [Suspect]
     Active Substance: ETHINYL ESTRADIOL\NORETHINDRONE ACETATE
     Indication: MENSTRUATION IRREGULAR

REACTIONS (9)
  - Amenorrhoea [Unknown]
  - Blindness [Unknown]
  - Therapeutic response unexpected [Unknown]
  - Nausea [Unknown]
  - Dysmenorrhoea [Unknown]
  - Metrorrhagia [Unknown]
  - Headache [Unknown]
  - Hypomenorrhoea [Unknown]
  - Off label use [Unknown]
